FAERS Safety Report 21985807 (Version 1)
Quarter: 2023Q1

REPORT INFORMATION
  Report Type: Spontaneous
  Country: CN (occurrence: CN)
  Receive Date: 20230213
  Receipt Date: 20230213
  Transmission Date: 20230417
  Serious: Yes (Hospitalization, Other)
  Sender: FDA-Public Use
  Company Number: CN-009507513-2302CHN003770

PATIENT
  Age: 61 Year
  Sex: Male
  Weight: 60 kg

DRUGS (10)
  1. KEYTRUDA [Suspect]
     Active Substance: PEMBROLIZUMAB
     Indication: Neoplasm
     Dosage: 200 MG ONCE
     Route: 041
     Dates: start: 20220627, end: 20220627
  2. FLUOROURACIL [Suspect]
     Active Substance: FLUOROURACIL
     Indication: Neoplasm
     Dosage: 0.75 GRAM ONCE
     Route: 041
     Dates: start: 20220623, end: 20220623
  3. FLUOROURACIL [Suspect]
     Active Substance: FLUOROURACIL
     Dosage: 3.25 GRAM ONCE
     Route: 041
     Dates: start: 20220623, end: 20220623
  4. CYCLOPHOSPHAMIDE [Suspect]
     Active Substance: CYCLOPHOSPHAMIDE
     Indication: Neoplasm
     Dosage: 0.9 G ONCE
     Route: 041
     Dates: start: 20220623, end: 20220623
  5. CISPLATIN [Suspect]
     Active Substance: CISPLATIN
     Indication: Neoplasm
     Dosage: 50 MG QD
     Route: 041
     Dates: start: 20220623, end: 20220625
  6. SODIUM CHLORIDE [Concomitant]
     Active Substance: SODIUM CHLORIDE
     Indication: Medication dilution
     Dosage: 500 ML QD
     Route: 041
     Dates: start: 20220623, end: 20220625
  7. SODIUM CHLORIDE [Concomitant]
     Active Substance: SODIUM CHLORIDE
     Dosage: 20 ML ONCE
     Route: 041
     Dates: start: 20220623, end: 20220623
  8. SODIUM CHLORIDE [Concomitant]
     Active Substance: SODIUM CHLORIDE
     Dosage: 170 ML ONCE
     Route: 041
     Dates: start: 20220623, end: 20220623
  9. SODIUM CHLORIDE [Concomitant]
     Active Substance: SODIUM CHLORIDE
     Dosage: 20 ML ONCE
     Route: 041
     Dates: start: 20220623, end: 20220623
  10. SODIUM CHLORIDE [Concomitant]
     Active Substance: SODIUM CHLORIDE
     Dosage: 100 ML ONCE
     Route: 041
     Dates: start: 20220627, end: 20220627

REACTIONS (1)
  - Pancytopenia [Recovering/Resolving]

NARRATIVE: CASE EVENT DATE: 20220712
